FAERS Safety Report 6805072-2 (Version None)
Quarter: 2010Q2

REPORT INFORMATION
  Report Type: 
  Country: None (occurrence: None)
  Receive Date: 20100628
  Receipt Date: 20071120
  Transmission Date: 20101027
  Serious: No
  Sender: FDA-Public Use
  Company Number: US-PFIZER INC-2007071717

PATIENT
  Sex: Female
  Weight: 74 kg

DRUGS (6)
  1. GENOTROPIN [Suspect]
     Indication: HYPOPITUITARISM
     Dates: start: 20060801
  2. GENOTROPIN [Suspect]
  3. CYMBALTA [Concomitant]
  4. METFORMIN HCL [Concomitant]
  5. ALPRAZOLAM [Concomitant]
  6. AMBIEN [Concomitant]

REACTIONS (2)
  - THYROXINE DECREASED [None]
  - WEIGHT INCREASED [None]
